FAERS Safety Report 6847785-2 (Version None)
Quarter: 2010Q3

REPORT INFORMATION
  Report Type: 
  Country: None (occurrence: None)
  Receive Date: 20100716
  Receipt Date: 20100712
  Transmission Date: 20110219
  Serious: Yes (Other)
  Sender: FDA-Public Use
  Company Number: HU-ROXANE LABORATORIES, INC.-2010-RO-00826RO

PATIENT
  Age: 29 Year
  Sex: Female

DRUGS (4)
  1. ROPINIROLE [Suspect]
     Indication: PARKINSONISM
     Dosage: 2 MG
  2. LEVETIRACETAM [Suspect]
     Indication: NEURODEGENERATIVE DISORDER
  3. PRAMIPEXOLE DIHYDROCHLORIDE [Suspect]
     Indication: PARKINSONISM
  4. TETRABENAZINE [Suspect]
     Indication: PARKINSONISM
     Dosage: 50 MG

REACTIONS (5)
  - AGITATION [None]
  - DRUG INEFFECTIVE [None]
  - HALLUCINATION [None]
  - SOMNOLENCE [None]
  - VERTIGO [None]
